FAERS Safety Report 6070257-2 (Version None)
Quarter: 2009Q1

REPORT INFORMATION
  Report Type: 
  Country: None (occurrence: None)
  Receive Date: 20090209
  Receipt Date: 20090130
  Transmission Date: 20090719
  Serious: Yes (Hospitalization)
  Sender: FDA-Public Use
  Company Number: JP-EISAI MEDICAL RESEARCH-E2020-02676-CLI-JP

PATIENT
  Sex: Male
  Weight: 40 kg

DRUGS (15)
  1. DONEPEZIL HCL [Suspect]
     Indication: DEMENTIA ALZHEIMER'S TYPE
     Route: 048
     Dates: start: 20050408, end: 20050414
  2. DONEPEZIL HCL [Suspect]
     Route: 048
     Dates: start: 20050415, end: 20080418
  3. DONEPEZIL HCL [Suspect]
     Route: 048
     Dates: start: 20080419, end: 20080422
  4. TIAPRIDE HYDROCHLORIDE [Concomitant]
     Route: 048
     Dates: start: 20071206, end: 20080422
  5. TIAPRIDE HYDROCHLORIDE [Concomitant]
     Route: 048
  6. GASTROM [Concomitant]
     Dates: start: 20071204, end: 20080422
  7. LANSOPRAZOLE [Concomitant]
     Route: 048
     Dates: start: 20071205, end: 20080422
  8. C-PARA [Concomitant]
     Dates: start: 20080422, end: 20080508
  9. POTASSIUM L-ASPARTATE [Concomitant]
     Dates: start: 20080422, end: 20080428
  10. VEEN-D [Concomitant]
     Dates: start: 20080422, end: 20080508
  11. PHYSIO 35 [Concomitant]
     Dates: start: 20080422, end: 20080508
  12. SOLITA-T NO 3 [Concomitant]
     Dates: start: 20080422, end: 20080508
  13. OMEPRAZOLE [Concomitant]
     Dates: start: 20080422, end: 20080428
  14. DALACIN-P [Concomitant]
     Dates: start: 20080422, end: 20080422
  15. MODACIN [Concomitant]
     Dates: start: 20080422, end: 20080428

REACTIONS (2)
  - PNEUMONIA ASPIRATION [None]
  - VOMITING [None]
